FAERS Safety Report 21552696 (Version 1)
Quarter: 2022Q4

REPORT INFORMATION
  Report Type: Report from Study
  Country: US (occurrence: US)
  Receive Date: 20221104
  Receipt Date: 20221104
  Transmission Date: 20230113
  Serious: Yes (Hospitalization)
  Sender: FDA-Public Use
  Company Number: US-ARGENX-2022-ARGX-US002216

PATIENT

DRUGS (1)
  1. VYVGART [Suspect]
     Active Substance: EFGARTIGIMOD ALFA-FCAB
     Indication: Myasthenia gravis
     Dosage: 10 MG/KG
     Route: 042
     Dates: start: 20221002

REACTIONS (7)
  - Myasthenia gravis crisis [Unknown]
  - Dyspnoea [Recovered/Resolved]
  - Urinary tract infection [Unknown]
  - Illness [Unknown]
  - Speech disorder [Unknown]
  - Dysarthria [Unknown]
  - Asthenia [Unknown]
